FAERS Safety Report 4310095-1 (Version None)
Quarter: 2004Q1

REPORT INFORMATION
  Report Type: 
  Country: None (occurrence: None)
  Receive Date: 20040301
  Receipt Date: 20031118
  Transmission Date: 20041129
  Serious: No
  Sender: FDA-Public Use
  Company Number: WAES 0309USA02033

PATIENT
  Age: 67 Year
  Sex: Female
  Weight: 907.6476 kg

DRUGS (2)
  1. ZETIA [Suspect]
     Indication: HYPERLIPIDAEMIA
     Dosage: 10 MG/DAILY/PO
     Route: 048
     Dates: start: 20030910, end: 20030916
  2. ZOCOR [Concomitant]

REACTIONS (3)
  - EXCORIATION [None]
  - RASH MACULO-PAPULAR [None]
  - RASH PRURITIC [None]
